FAERS Safety Report 15559472 (Version 2)
Quarter: 2020Q3

REPORT INFORMATION
  Report Type: Spontaneous
  Country: US (occurrence: US)
  Receive Date: 20181029
  Receipt Date: 20200904
  Transmission Date: 20201102
  Serious: Yes (Other)
  Sender: FDA-Public Use
  Company Number: US-ABBVIE-18S-163-2527805-00

PATIENT
  Sex: Female

DRUGS (1)
  1. CREON [Suspect]
     Active Substance: PANCRELIPASE AMYLASE\PANCRELIPASE LIPASE\PANCRELIPASE PROTEASE
     Indication: PRODUCT USED FOR UNKNOWN INDICATION
     Route: 048

REACTIONS (6)
  - Spinal cord compression [Unknown]
  - Intervertebral disc protrusion [Unknown]
  - Road traffic accident [Unknown]
  - Fall [Unknown]
  - Spinal column injury [Unknown]
  - Weight increased [Unknown]

NARRATIVE: CASE EVENT DATE: 2020
